FAERS Safety Report 4774558-7 (Version None)
Quarter: 2005Q3

REPORT INFORMATION
  Report Type: 
  Country: None (occurrence: None)
  Receive Date: 20050914
  Receipt Date: 20050310
  Transmission Date: 20060218
  Serious: Yes (Death)
  Sender: FDA-Public Use
  Company Number: 163-20785-05030260

PATIENT
  Age: 56 Year
  Sex: Male

DRUGS (6)
  1. THALOMID [Suspect]
     Indication: BRAIN NEOPLASM MALIGNANT
     Dosage: 400 MG, DAILY, ORAL; 150-600MG, DAILY, ORAL
     Route: 048
     Dates: start: 20040901, end: 20050301
  2. THALOMID [Suspect]
     Indication: GLIOBLASTOMA
     Dosage: 400 MG, DAILY, ORAL; 150-600MG, DAILY, ORAL
     Route: 048
     Dates: start: 20040901, end: 20050301
  3. THALOMID [Suspect]
     Indication: BRAIN NEOPLASM MALIGNANT
     Dosage: 400 MG, DAILY, ORAL; 150-600MG, DAILY, ORAL
     Route: 048
     Dates: start: 20040913
  4. THALOMID [Suspect]
     Indication: GLIOBLASTOMA
     Dosage: 400 MG, DAILY, ORAL; 150-600MG, DAILY, ORAL
     Route: 048
     Dates: start: 20040913
  5. THALOMID [Suspect]
  6. THALOMID [Suspect]

REACTIONS (2)
  - DEATH [None]
  - DISEASE PROGRESSION [None]
